FAERS Safety Report 18642448 (Version 1)
Quarter: 2020Q4

REPORT INFORMATION
  Report Type: Spontaneous
  Country: US (occurrence: US)
  Receive Date: 20201221
  Receipt Date: 20201221
  Transmission Date: 20210114
  Serious: No
  Sender: FDA-Public Use
  Company Number: US-GLENMARK PHARMACEUTICALS-2020GMK050011

PATIENT

DRUGS (1)
  1. ESTRADIOL VAGINAL INSERTS USP [Suspect]
     Active Substance: ESTRADIOL
     Indication: URETHRAL PROLAPSE
     Dosage: UNK, TWO TIMES A WEEK
     Route: 067
     Dates: start: 2020

REACTIONS (2)
  - Product use in unapproved indication [Unknown]
  - Pruritus [Unknown]

NARRATIVE: CASE EVENT DATE: 2020
